FAERS Safety Report 9565855 (Version 7)
Quarter: 2013Q4

REPORT INFORMATION
  Report Type: Spontaneous
  Country: US (occurrence: US)
  Receive Date: 20130930
  Receipt Date: 20131021
  Transmission Date: 20140711
  Serious: Yes (Death, Hospitalization)
  Sender: FDA-Public Use
  Company Number: US-JNJFOC-20130916726

PATIENT
  Age: 75 Year
  Sex: Male
  Weight: 89.81 kg

DRUGS (2)
  1. XARELTO [Suspect]
     Indication: PULMONARY EMBOLISM
     Route: 048
     Dates: start: 20130917, end: 201309
  2. XARELTO [Suspect]
     Indication: DEEP VEIN THROMBOSIS
     Route: 048
     Dates: start: 20130917, end: 201309

REACTIONS (6)
  - Head injury [Fatal]
  - Haemorrhage intracranial [Fatal]
  - Syncope [Unknown]
  - Haematuria [Unknown]
  - Epistaxis [Unknown]
  - Ear haemorrhage [Unknown]
